FAERS Safety Report 15784529 (Version 2)
Quarter: 2019Q1

REPORT INFORMATION
  Report Type: Spontaneous
  Country: US (occurrence: US)
  Receive Date: 20190103
  Receipt Date: 20190108
  Transmission Date: 20190417
  Serious: No
  Sender: FDA-Public Use
  Company Number: US-DRREDDYS-USA/USA/18/0106434

PATIENT
  Sex: Female
  Weight: 61 kg

DRUGS (1)
  1. HABITROL [Suspect]
     Active Substance: NICOTINE
     Indication: SMOKING CESSATION THERAPY
     Route: 062
     Dates: start: 20181213

REACTIONS (5)
  - Product adhesion issue [Unknown]
  - Drug ineffective [Unknown]
  - Product quality issue [Unknown]
  - Nicotine dependence [Unknown]
  - Adhesive tape use [Unknown]
